FAERS Safety Report 5302542-3 (Version None)
Quarter: 2007Q2

REPORT INFORMATION
  Report Type: 
  Country: None (occurrence: None)
  Receive Date: 20070413
  Receipt Date: 20070402
  Transmission Date: 20071010
  Serious: Yes (Other)
  Sender: FDA-Public Use
  Company Number: 2007CL000993

PATIENT
  Age: 40 Year
  Sex: Female
  Weight: 104.8716 kg

DRUGS (8)
  1. SYMLIN [Suspect]
     Indication: DIABETES MELLITUS INSULIN-DEPENDENT
     Dosage: 60 MCG;TID;SC
     Route: 058
     Dates: start: 20070219
  2. APIDRA [Suspect]
     Indication: DIABETES MELLITUS INSULIN-DEPENDENT
     Dosage: PRN;SC
     Route: 058
     Dates: start: 20070110
  3. APIDRA INSULIN [Concomitant]
  4. CADEUT [Concomitant]
  5. PROZAC [Concomitant]
  6. SYNTHROID [Concomitant]
  7. ALTACE [Concomitant]
  8. HYDROCHLOROTHIAZIDE [Concomitant]

REACTIONS (1)
  - HYPOGLYCAEMIA [None]
